FAERS Safety Report 23692641 (Version 2)
Quarter: 2024Q2

REPORT INFORMATION
  Report Type: Report from Study
  Country: CL (occurrence: CL)
  Receive Date: 20240401
  Receipt Date: 20240430
  Transmission Date: 20240715
  Serious: Yes (Hospitalization, Other)
  Sender: FDA-Public Use
  Company Number: CL-002147023-NVSC2024CL018372

PATIENT
  Age: 64 Year
  Sex: Male

DRUGS (2)
  1. COSENTYX [Suspect]
     Active Substance: SECUKINUMAB
     Indication: Psoriatic arthropathy
     Dosage: 300 MG, QMO
     Route: 058
     Dates: start: 20231018, end: 20231225
  2. ESOMEPRAZOLE [Concomitant]
     Active Substance: ESOMEPRAZOLE
     Indication: Gastrointestinal disorder
     Dosage: UNK
     Route: 065

REACTIONS (11)
  - Aphthous ulcer [Unknown]
  - Dysphagia [Unknown]
  - Oropharyngeal discomfort [Unknown]
  - Oral discomfort [Unknown]
  - Oral pain [Unknown]
  - Malaise [Unknown]
  - Oral mucosal blistering [Unknown]
  - Glossodynia [Unknown]
  - Feeding disorder [Unknown]
  - Pharyngitis [Unknown]
  - Gastritis bacterial [Unknown]

NARRATIVE: CASE EVENT DATE: 20231201
